FAERS Safety Report 18179439 (Version 1)
Quarter: 2020Q3

REPORT INFORMATION
  Report Type: Spontaneous
  Country: US (occurrence: US)
  Receive Date: 20200821
  Receipt Date: 20200821
  Transmission Date: 20201103
  Serious: No
  Sender: FDA-Public Use
  Company Number: US-TEVA-2020-US-1818706

PATIENT

DRUGS (1)
  1. TEVA ALBUTEROL HFA [Suspect]
     Active Substance: ALBUTEROL SULFATE
     Indication: ASTHMA
     Dosage: OVER THE COURSE OF 3HOURS IN ONE DAY
     Route: 055
     Dates: start: 20200721

REACTIONS (3)
  - Asthma [Not Recovered/Not Resolved]
  - Therapy non-responder [Unknown]
  - Dyspnoea [Not Recovered/Not Resolved]

NARRATIVE: CASE EVENT DATE: 2020
